FAERS Safety Report 7753703-5 (Version None)
Quarter: 2011Q3

REPORT INFORMATION
  Report Type: 
  Country: None (occurrence: None)
  Receive Date: 20110915
  Receipt Date: 20110915
  Transmission Date: 20111222
  Serious: No
  Sender: FDA-Public Use
  Company Number: None

PATIENT
  Age: 30 Year
  Sex: Female
  Weight: 56.699 kg

DRUGS (1)
  1. MONISTAT [Suspect]
     Indication: FUNGAL INFECTION
     Dosage: 1200 MG
     Route: 067
     Dates: start: 20110910, end: 20110910

REACTIONS (4)
  - PAIN [None]
  - NAUSEA [None]
  - PRURITUS [None]
  - CRYING [None]
